FAERS Safety Report 9493892 (Version 1)
Quarter: 2013Q3

REPORT INFORMATION
  Report Type: Spontaneous
  Country: US (occurrence: US)
  Receive Date: 20130903
  Receipt Date: 20130903
  Transmission Date: 20140515
  Serious: Yes (Other)
  Sender: FDA-Public Use
  Company Number: US-PFIZER INC-2013252277

PATIENT
  Sex: Female

DRUGS (1)
  1. LYRICA [Suspect]
     Dosage: UNK, 1X/DAY

REACTIONS (4)
  - Arthropathy [Unknown]
  - Meniscus injury [Unknown]
  - Mental impairment [Unknown]
  - Memory impairment [Unknown]
